FAERS Safety Report 13633430 (Version 1)
Quarter: 2017Q2

REPORT INFORMATION
  Report Type: Spontaneous
  Country: US (occurrence: US)
  Receive Date: 20170531
  Receipt Date: 20170531
  Transmission Date: 20170830
  Serious: No
  Sender: FDA-Public Use
  Company Number: US-ASTELLAS-1543903

PATIENT
  Sex: Female

DRUGS (15)
  1. CRESTOR [Concomitant]
     Active Substance: ROSUVASTATIN CALCIUM
     Route: 065
  2. PROCHLORPERAZINE. [Concomitant]
     Active Substance: PROCHLORPERAZINE
     Route: 065
  3. TARCEVA [Suspect]
     Active Substance: ERLOTINIB HYDROCHLORIDE
     Indication: LUNG NEOPLASM MALIGNANT
  4. DOXYCYCLINE HYCLATE. [Concomitant]
     Active Substance: DOXYCYCLINE HYCLATE
     Route: 065
  5. METHYLPRED [Concomitant]
     Active Substance: METHYLPREDNISOLONE
     Route: 065
  6. TRIAMCINOLON [Concomitant]
     Route: 065
  7. VALACYCLOVIR [Concomitant]
     Active Substance: VALACYCLOVIR HYDROCHLORIDE
     Route: 065
  8. AMLODIPINE [Concomitant]
     Active Substance: AMLODIPINE BESYLATE
     Route: 065
  9. LOSARTAN POTASSIUM. [Concomitant]
     Active Substance: LOSARTAN POTASSIUM
     Route: 065
  10. HYDROCODONE BITARTRATE AND ACETAMINOPHEN [Concomitant]
     Active Substance: ACETAMINOPHEN\HYDROCODONE BITARTRATE
     Dosage: DOSE 5-325MG
     Route: 065
  11. ZETIA [Concomitant]
     Active Substance: EZETIMIBE
     Route: 065
  12. TARCEVA [Suspect]
     Active Substance: ERLOTINIB HYDROCHLORIDE
     Indication: LUNG NEOPLASM MALIGNANT
     Dosage: AT BEDTIME
     Route: 048
  13. TARCEVA [Suspect]
     Active Substance: ERLOTINIB HYDROCHLORIDE
     Indication: LUNG NEOPLASM MALIGNANT
     Dosage: AT BEDTIME
     Route: 048
  14. AZITHROMYCIN ANHYDROUS. [Concomitant]
     Active Substance: AZITHROMYCIN ANHYDROUS
     Route: 065
  15. ONDANSETRON [Concomitant]
     Active Substance: ONDANSETRON
     Route: 065

REACTIONS (5)
  - Diarrhoea [Not Recovered/Not Resolved]
  - Nail disorder [Not Recovered/Not Resolved]
  - Lip dry [Not Recovered/Not Resolved]
  - Hirsutism [Not Recovered/Not Resolved]
  - Dry skin [Not Recovered/Not Resolved]
